FAERS Safety Report 14239993 (Version 1)
Quarter: 2017Q4

REPORT INFORMATION
  Report Type: Spontaneous
  Country: US (occurrence: US)
  Receive Date: 20171130
  Receipt Date: 20171130
  Transmission Date: 20180321
  Serious: No
  Sender: FDA-Public Use
  Company Number: US-GLAXOSMITHKLINE-US2017178266

PATIENT
  Age: 41 Year
  Sex: Female

DRUGS (1)
  1. NICODERM CQ [Suspect]
     Active Substance: NICOTINE
     Indication: SMOKING CESSATION THERAPY
     Dosage: 14 MG, UNK
     Dates: start: 20171103, end: 20171117

REACTIONS (10)
  - Drug hypersensitivity [Unknown]
  - Malaise [Unknown]
  - Fatigue [Unknown]
  - Headache [Unknown]
  - Somnolence [Unknown]
  - Application site vesicles [Unknown]
  - Application site papules [Unknown]
  - Nausea [Unknown]
  - Application site erythema [Unknown]
  - Application site pain [Unknown]

NARRATIVE: CASE EVENT DATE: 20171105
